FAERS Safety Report 8941362 (Version 1)
Quarter: 2012Q4

REPORT INFORMATION
  Report Type: 
  Country: NL (occurrence: NL)
  Receive Date: 20121203
  Receipt Date: 20121203
  Transmission Date: 20130627
  Serious: Yes (Other)
  Sender: FDA-Public Use
  Company Number: NL-ROCHE-1160602

PATIENT

DRUGS (7)
  1. RIVOTRIL [Suspect]
     Indication: DEPRESSION
     Route: 048
  2. ANAFRANIL [Suspect]
     Indication: DEPRESSION
     Route: 065
  3. TRANDATE [Suspect]
     Indication: HYPERTENSION
     Route: 065
  4. MECLIZINE HYDROCHLORIDE/PYRIDOXINE HYDROCHLORIDE [Suspect]
     Indication: NAUSEA
     Route: 065
  5. DIORALYTE [Suspect]
     Indication: NAUSEA
     Route: 065
  6. IMODIUM [Suspect]
     Indication: PRODUCT USED FOR UNKNOWN INDICATION
     Route: 065
  7. PHENOBARBITAL [Concomitant]

REACTIONS (8)
  - Maternal exposure timing unspecified [Unknown]
  - Withdrawal syndrome [Unknown]
  - Developmental delay [Unknown]
  - Premature baby [None]
  - Drug withdrawal syndrome neonatal [None]
  - Maternal drugs affecting foetus [None]
  - Irritability [None]
  - Tremor neonatal [None]
